FAERS Safety Report 11650323 (Version 1)
Quarter: 2015Q4

REPORT INFORMATION
  Report Type: Spontaneous
  Country: PT (occurrence: PT)
  Receive Date: 20151021
  Receipt Date: 20151021
  Transmission Date: 20160304
  Serious: Yes (Disabling)
  Sender: FDA-Public Use
  Company Number: PT-B.I. PHARMACEUTICALS,INC./RIDGEFIELD-2015-BI-57057PO

PATIENT
  Sex: Female
  Weight: 78 kg

DRUGS (6)
  1. METFORMIN GENERIS [Concomitant]
     Indication: PRODUCT USED FOR UNKNOWN INDICATION
     Dosage: FORMULATION: FILM-COATED TABLET
     Route: 048
  2. ACIDO IBANDRONICO PHARMAKERN [Concomitant]
     Indication: PRODUCT USED FOR UNKNOWN INDICATION
     Dosage: FORMULATION: FILM-COATED TABLET
     Route: 048
  3. ATORVASTATINA KRKA [Concomitant]
     Indication: PRODUCT USED FOR UNKNOWN INDICATION
     Dosage: FORMULATION: FILM-COATED TABLET
     Route: 048
  4. VALSARTAN + HIDROCLOROTIAZIDA PHARMAKERN [Concomitant]
     Indication: PRODUCT USED FOR UNKNOWN INDICATION
     Dosage: FORMULATION: FILM-COATED TABLET
     Route: 048
  5. PRADAXA [Suspect]
     Active Substance: DABIGATRAN ETEXILATE MESYLATE
     Indication: ATRIAL FIBRILLATION
     Dosage: 220 MG
     Route: 048
     Dates: start: 20120117
  6. LANOXIN [Concomitant]
     Active Substance: DIGOXIN
     Indication: PRODUCT USED FOR UNKNOWN INDICATION
     Route: 065

REACTIONS (3)
  - Abnormal faeces [Not Recovered/Not Resolved]
  - Diarrhoea [Not Recovered/Not Resolved]
  - Defaecation urgency [Not Recovered/Not Resolved]

NARRATIVE: CASE EVENT DATE: 20120117
